FAERS Safety Report 6549199-1 (Version None)
Quarter: 2010Q1

REPORT INFORMATION
  Report Type: 
  Country: None (occurrence: None)
  Receive Date: 20100119
  Receipt Date: 20100105
  Transmission Date: 20100710
  Serious: Yes (Hospitalization, Other)
  Sender: FDA-Public Use
  Company Number: TUK2009A00142

PATIENT
  Sex: Female

DRUGS (14)
  1. ACTOS [Suspect]
     Indication: DRUG USE FOR UNKNOWN INDICATION
     Dosage: 30 MG
     Dates: start: 20080123
  2. ASPIRIN [Concomitant]
  3. SIMVASTATIN [Concomitant]
  4. AMLODIPINE [Concomitant]
  5. FUROSEMIDE [Concomitant]
  6. DIGOXIN [Concomitant]
  7. IRBESARTAN [Concomitant]
  8. METFORMIN HCL [Concomitant]
  9. ALENDRONIC ACID (ALENDRONIC ACID) [Concomitant]
  10. CALCEOS (COLECALCIFEROL, CALCIUM CARBONATE) [Concomitant]
  11. CODEINE PHOSPHATE AND ACETAMINOPHEN [Concomitant]
  12. SALBUTAMOL (SALBUTAMOL) [Concomitant]
  13. SERETIDE 125 (FLUTICASONE PROPIONATE, SALMETEROL XINAFOATE) [Concomitant]
  14. CITALOPRAM HYDROBROMIDE [Concomitant]

REACTIONS (4)
  - DEPRESSION [None]
  - FALL [None]
  - OSTEOPOROSIS [None]
  - TIBIA FRACTURE [None]
